FAERS Safety Report 9110008 (Version 2)
Quarter: 2013Q2

REPORT INFORMATION
  Report Type: Report from Study
  Country: FR (occurrence: FR)
  Receive Date: 20130222
  Receipt Date: 20130430
  Transmission Date: 20140414
  Serious: Yes (Hospitalization)
  Sender: FDA-Public Use
  Company Number: FR-CELGENEUS-056-50794-13021710

PATIENT
  Age: 59 Year
  Sex: Male
  Weight: 75 kg

DRUGS (12)
  1. VIDAZA [Suspect]
     Indication: MYELODYSPLASTIC SYNDROME
     Dosage: 75 MILLIGRAM/SQ. METER
     Route: 058
     Dates: start: 20110912
  2. VIDAZA [Suspect]
     Route: 058
     Dates: end: 20130211
  3. VIDAZA [Suspect]
     Route: 058
     Dates: start: 20130408
  4. KYTRIL [Suspect]
     Indication: NAUSEA
     Route: 048
     Dates: start: 20110912
  5. KYTRIL [Suspect]
     Indication: PROPHYLAXIS OF NAUSEA AND VOMITING
  6. INEXIUM [Concomitant]
     Indication: GASTRITIS
     Route: 048
     Dates: start: 20110823
  7. INEXIUM [Concomitant]
     Dosage: 20
     Route: 065
  8. IXPRIM [Concomitant]
     Indication: PAIN
     Route: 048
     Dates: start: 2007
  9. TOPALGIC LP [Concomitant]
     Indication: PAIN
     Dosage: 100
     Route: 048
     Dates: start: 2007
  10. XANAX [Concomitant]
     Indication: PRODUCT USED FOR UNKNOWN INDICATION
     Dosage: .25
     Route: 065
  11. PARACETAMOL [Concomitant]
     Indication: PAIN
     Route: 065
  12. TRANSIPEG [Concomitant]
     Indication: CONSTIPATION
     Route: 065

REACTIONS (2)
  - Subileus [Recovering/Resolving]
  - Small intestinal obstruction [Recovering/Resolving]
